FAERS Safety Report 23310146 (Version 1)
Quarter: 2023Q4

REPORT INFORMATION
  Report Type: Spontaneous
  Country: US (occurrence: None)
  Receive Date: 20231218
  Receipt Date: 20231218
  Transmission Date: 20240109
  Serious: Yes (Hospitalization)
  Sender: FDA-Public Use
  Company Number: None

PATIENT
  Age: 57 Year
  Sex: Female

DRUGS (2)
  1. CAPECITABINE [Suspect]
     Active Substance: CAPECITABINE
     Indication: Appendix cancer
     Dosage: FREQUENCY : AS DIRECTED;?
     Route: 048
     Dates: start: 20230921
  2. CAPECITABINE [Suspect]
     Active Substance: CAPECITABINE
     Dosage: FREQUENCY : AS DIRECTED;?
     Route: 048

REACTIONS (2)
  - Diarrhoea [None]
  - Urinary tract infection [None]

NARRATIVE: CASE EVENT DATE: 20231101
